FAERS Safety Report 6734597-3 (Version None)
Quarter: 2010Q2

REPORT INFORMATION
  Report Type: 
  Country: None (occurrence: None)
  Receive Date: 20100519
  Receipt Date: 20100506
  Transmission Date: 20101027
  Serious: Yes (Hospitalization)
  Sender: FDA-Public Use
  Company Number: US-GDP-10408039

PATIENT
  Sex: Female

DRUGS (1)
  1. ORACEA [Suspect]
     Dosage: (40 MG QD ORAL)
     Route: 048

REACTIONS (1)
  - PANCREATITIS [None]
